FAERS Safety Report 6061571-5 (Version None)
Quarter: 2009Q1

REPORT INFORMATION
  Report Type: 
  Country: None (occurrence: None)
  Receive Date: 20090130
  Receipt Date: 20090130
  Transmission Date: 20090719
  Serious: Yes (Death)
  Sender: FDA-Public Use
  Company Number: None

PATIENT
  Age: 82 Year
  Sex: Female
  Weight: 68 kg

DRUGS (2)
  1. WARFARIN SODIUM [Suspect]
     Indication: ATRIAL FIBRILLATION
     Dosage: 4.5 MG DAILY PO  (DURATION: EXTENDED PERIOD)
     Route: 048
  2. GINGKO BILOBA [Suspect]

REACTIONS (1)
  - LOSS OF CONSCIOUSNESS [None]
